FAERS Safety Report 4374938-8 (Version None)
Quarter: 2004Q2

REPORT INFORMATION
  Report Type: 
  Country: None (occurrence: None)
  Receive Date: 20040603
  Receipt Date: 20031119
  Transmission Date: 20050107
  Serious: Yes (Other)
  Sender: FDA-Public Use
  Company Number: 200320021US

PATIENT
  Age: 21 Year
  Sex: Female

DRUGS (4)
  1. LOVENOX [Suspect]
     Indication: SUBCLAVIAN VEIN THROMBOSIS
     Dosage: 60 MG BID SC
     Route: 058
     Dates: start: 20031117, end: 20031117
  2. CLAVULANATE POTASSIUM, AMOXICILLIN TRIHYDRATE (AUGMENTIN) [Concomitant]
  3. DITROPAN [Concomitant]
  4. NITROFURANTOIN (MACRODANTIN) [Concomitant]

REACTIONS (3)
  - HYPERSENSITIVITY [None]
  - RASH [None]
  - SYNCOPE [None]
